FAERS Safety Report 8967745 (Version 1)
Quarter: 2012Q4

REPORT INFORMATION
  Report Type: Spontaneous
  Country: US (occurrence: None)
  Receive Date: 20121213
  Receipt Date: 20121213
  Transmission Date: 20130627
  Serious: Yes (Death, Hospitalization)
  Sender: FDA-Public Use
  Company Number: None

PATIENT
  Age: 60 Year
  Sex: Male

DRUGS (11)
  1. LETAIRIS 10MG GILEAD [Suspect]
     Indication: PULMONARY HYPERTENSION SECONDARY
     Dosage: 10mg QD orally
     Route: 048
     Dates: start: 201007, end: 201211
  2. VIAGRA [Concomitant]
  3. DILAUDID [Concomitant]
  4. ALDACTONE [Concomitant]
  5. MEPHYTON [Concomitant]
  6. LACTULOSE [Concomitant]
  7. ATIVAN [Concomitant]
  8. FENTANYL [Concomitant]
  9. ZOFRAN [Concomitant]
  10. PRILOSEC [Concomitant]
  11. MUCINEX [Concomitant]

REACTIONS (7)
  - Confusional state [None]
  - General physical health deterioration [None]
  - Disorientation [None]
  - Hypersomnia [None]
  - Jaundice [None]
  - Hepatic failure [None]
  - Neoplasm progression [None]
